FAERS Safety Report 4832291-7 (Version None)
Quarter: 2005Q4

REPORT INFORMATION
  Report Type: 
  Country: None (occurrence: None)
  Receive Date: 20051114
  Receipt Date: 20051026
  Transmission Date: 20060501
  Serious: Yes (Hospitalization)
  Sender: FDA-Public Use
  Company Number: US147893

PATIENT
  Age: 50 Year
  Sex: Female

DRUGS (8)
  1. ETANERCEPT (ETANERCEPT) [Suspect]
     Indication: RHEUMATOID ARTHRITIS
     Dosage: 25 MG, 2 IN 1 WEEKS, SC
     Route: 058
     Dates: start: 19980810
  2. METHOTREXATE [Concomitant]
  3. PREDNISONE [Concomitant]
  4. CANDESARTAN CILEXETIL [Concomitant]
  5. METFORMIN HYDROCHLORIDE [Concomitant]
  6. ACTONEL [Concomitant]
  7. CALCIUM WITH VITAMIN D [Concomitant]
  8. FOLIC ACID [Concomitant]

REACTIONS (7)
  - CONDITION AGGRAVATED [None]
  - GLYCOSYLATED HAEMOGLOBIN INCREASED [None]
  - JOINT EFFUSION [None]
  - RHEUMATOID ARTHRITIS [None]
  - URINARY TRACT INFECTION [None]
  - WALKING AID USER [None]
  - WHITE BLOOD CELL COUNT INCREASED [None]
